FAERS Safety Report 5126445-2 (Version None)
Quarter: 2006Q4

REPORT INFORMATION
  Report Type: 
  Country: None (occurrence: None)
  Receive Date: 20061010
  Receipt Date: 20060926
  Transmission Date: 20070319
  Serious: Yes (Hospitalization)
  Sender: FDA-Public Use
  Company Number: 2006SP002410

PATIENT
  Age: 61 Year
  Sex: Male

DRUGS (3)
  1. ASMANEX TWISTHALER [Suspect]
     Indication: DRUG USE FOR UNKNOWN INDICATION
     Dosage: 220 MCG
  2. ADVAIR HFA [Concomitant]
  3. MORPHINE [Concomitant]

REACTIONS (3)
  - DEVICE BREAKAGE [None]
  - DEVICE MALFUNCTION [None]
  - MALAISE [None]
